FAERS Safety Report 6919388-2 (Version None)
Quarter: 2010Q3

REPORT INFORMATION
  Report Type: 
  Country: None (occurrence: None)
  Receive Date: 20100811
  Receipt Date: 20100803
  Transmission Date: 20110219
  Serious: Yes (Hospitalization)
  Sender: FDA-Public Use
  Company Number: A0874927A

PATIENT
  Age: 35 Year
  Sex: Male

DRUGS (1)
  1. AVANDIA [Suspect]
     Dosage: 8MG PER DAY
     Route: 048
     Dates: start: 20000120, end: 20010930

REACTIONS (3)
  - MYOCARDIAL INFARCTION [None]
  - STENT PLACEMENT [None]
  - VASCULAR GRAFT [None]
